FAERS Safety Report 8437418-6 (Version None)
Quarter: 2012Q2

REPORT INFORMATION
  Report Type: 
  Country: None (occurrence: None)
  Receive Date: 20120614
  Receipt Date: 20120321
  Transmission Date: 20120825
  Serious: No
  Sender: FDA-Public Use
  Company Number: US-AMGEN-USASP2012015874

PATIENT
  Age: 74 Year
  Sex: Female
  Weight: 62.132 kg

DRUGS (8)
  1. ASPIRIN [Concomitant]
  2. FLOVENT HFA [Concomitant]
     Dosage: UNK
  3. LOSARTAN POTASSIUM [Concomitant]
  4. AMLODIPINE [Concomitant]
  5. LEVOTHYROXINE SODIUM [Concomitant]
  6. PROLIA [Suspect]
     Indication: OSTEOPOROSIS POSTMENOPAUSAL
     Dosage: 60 MG, Q6MO
     Route: 058
     Dates: start: 20120305, end: 20120305
  7. HYDROCHLOROTHIAZIDE [Concomitant]
  8. VENTOLIN HFA [Concomitant]
     Dosage: UNK

REACTIONS (2)
  - CHEST PAIN [None]
  - BACK PAIN [None]
